FAERS Safety Report 6973168-0 (Version None)
Quarter: 2010Q3

REPORT INFORMATION
  Report Type: 
  Country: None (occurrence: None)
  Receive Date: 20100909
  Receipt Date: 20100827
  Transmission Date: 20110219
  Serious: Yes (Hospitalization)
  Sender: FDA-Public Use
  Company Number: ZA-ROCHE-724176

PATIENT
  Sex: Female
  Weight: 59 kg

DRUGS (12)
  1. TOCILIZUMAB [Suspect]
     Indication: RHEUMATOID ARTHRITIS
     Route: 042
     Dates: start: 20060323
  2. BLINDED TOCILIZUMAB [Suspect]
     Indication: RHEUMATOID ARTHRITIS
     Dosage: PATIENT ENROLLED IN BLINDED MRA CORE STUDY WA18063 END OF STUDY UNBLINDING REVEALED PT RECEVIED MRA.
     Route: 042
  3. METHOTREXATE [Concomitant]
     Dates: start: 20060109
  4. METHOTREXATE [Concomitant]
     Dates: start: 20080524
  5. FOLIC ACID [Concomitant]
     Dates: start: 19990814
  6. 1 CONCOMITANT DRUG [Concomitant]
     Dosage: DRUG NAME REPORTED AS WAMOXEN
     Dates: start: 20060109
  7. DOXAPHENE [Concomitant]
     Dates: start: 20090109
  8. ELTROXIN [Concomitant]
     Dosage: DAILY DOSE: 100
     Dates: start: 20060109
  9. FOSAMAX [Concomitant]
     Dates: start: 19991015
  10. CALTRATE PLUS [Concomitant]
     Dates: start: 20050509
  11. MITIL [Concomitant]
     Dosage: 1 PRN
     Dates: start: 20060109
  12. NAPROXEN [Concomitant]
     Dates: start: 20090109

REACTIONS (1)
  - CHEST PAIN [None]
